FAERS Safety Report 25214102 (Version 1)
Quarter: 2025Q2

REPORT INFORMATION
  Report Type: Spontaneous
  Country: FR (occurrence: FR)
  Receive Date: 20250418
  Receipt Date: 20250418
  Transmission Date: 20250716
  Serious: Yes (Hospitalization)
  Sender: MYLAN
  Company Number: None

PATIENT
  Age: 67 Year
  Sex: Female
  Weight: 82 kg

DRUGS (64)
  1. ALMOTRIPTAN [Suspect]
     Active Substance: ALMOTRIPTAN
     Indication: Migraine
     Dosage: 12.5 MILLIGRAM, QD
  2. ALMOTRIPTAN [Suspect]
     Active Substance: ALMOTRIPTAN
     Dosage: 12.5 MILLIGRAM, QD
     Route: 048
  3. ALMOTRIPTAN [Suspect]
     Active Substance: ALMOTRIPTAN
     Dosage: 12.5 MILLIGRAM, QD
     Route: 048
  4. ALMOTRIPTAN [Suspect]
     Active Substance: ALMOTRIPTAN
     Dosage: 12.5 MILLIGRAM, QD
  5. TOPIRAMATE [Suspect]
     Active Substance: TOPIRAMATE
     Indication: Migraine
     Dosage: 100 MILLIGRAM, QD
  6. TOPIRAMATE [Suspect]
     Active Substance: TOPIRAMATE
     Dosage: 100 MILLIGRAM, QD
     Route: 048
  7. TOPIRAMATE [Suspect]
     Active Substance: TOPIRAMATE
     Dosage: 100 MILLIGRAM, QD
     Route: 048
  8. TOPIRAMATE [Suspect]
     Active Substance: TOPIRAMATE
     Dosage: 100 MILLIGRAM, QD
  9. CITALOPRAM [Suspect]
     Active Substance: CITALOPRAM
     Indication: Product used for unknown indication
     Dosage: 20 MILLIGRAM, QD
  10. CITALOPRAM [Suspect]
     Active Substance: CITALOPRAM
     Dosage: 20 MILLIGRAM, QD
     Route: 048
  11. CITALOPRAM [Suspect]
     Active Substance: CITALOPRAM
     Dosage: 20 MILLIGRAM, QD
     Route: 048
  12. CITALOPRAM [Suspect]
     Active Substance: CITALOPRAM
     Dosage: 20 MILLIGRAM, QD
  13. EXEMESTANE [Suspect]
     Active Substance: EXEMESTANE
     Indication: Breast cancer
     Dosage: 1 DOSAGE FORM, QD
  14. EXEMESTANE [Suspect]
     Active Substance: EXEMESTANE
     Dosage: 1 DOSAGE FORM, QD
     Route: 048
  15. EXEMESTANE [Suspect]
     Active Substance: EXEMESTANE
     Dosage: 1 DOSAGE FORM, QD
     Route: 048
  16. EXEMESTANE [Suspect]
     Active Substance: EXEMESTANE
     Dosage: 1 DOSAGE FORM, QD
  17. LAMOTRIGINE [Suspect]
     Active Substance: LAMOTRIGINE
     Indication: Epilepsy
     Dosage: 200 MILLIGRAM, QD
  18. LAMOTRIGINE [Suspect]
     Active Substance: LAMOTRIGINE
     Dosage: 200 MILLIGRAM, QD
     Route: 048
  19. LAMOTRIGINE [Suspect]
     Active Substance: LAMOTRIGINE
     Dosage: 200 MILLIGRAM, QD
     Route: 048
  20. LAMOTRIGINE [Suspect]
     Active Substance: LAMOTRIGINE
     Dosage: 200 MILLIGRAM, QD
  21. KETOPROFEN [Suspect]
     Active Substance: KETOPROFEN
     Indication: Migraine
     Dosage: 150 MILLIGRAM, QD
  22. KETOPROFEN [Suspect]
     Active Substance: KETOPROFEN
     Dosage: 150 MILLIGRAM, QD
     Route: 048
  23. KETOPROFEN [Suspect]
     Active Substance: KETOPROFEN
     Dosage: 150 MILLIGRAM, QD
     Route: 048
  24. KETOPROFEN [Suspect]
     Active Substance: KETOPROFEN
     Dosage: 150 MILLIGRAM, QD
  25. TRIMIPRAMINE MALEATE [Suspect]
     Active Substance: TRIMIPRAMINE MALEATE
     Indication: Product used for unknown indication
     Dosage: 100 MILLIGRAM, QD
  26. TRIMIPRAMINE MALEATE [Suspect]
     Active Substance: TRIMIPRAMINE MALEATE
     Dosage: 100 MILLIGRAM, QD
     Route: 048
  27. TRIMIPRAMINE MALEATE [Suspect]
     Active Substance: TRIMIPRAMINE MALEATE
     Dosage: 100 MILLIGRAM, QD
     Route: 048
  28. TRIMIPRAMINE MALEATE [Suspect]
     Active Substance: TRIMIPRAMINE MALEATE
     Dosage: 100 MILLIGRAM, QD
  29. ACETAZOLAMIDE [Suspect]
     Active Substance: ACETAZOLAMIDE
     Indication: Product used for unknown indication
     Dosage: 250 MILLIGRAM, QD
  30. ACETAZOLAMIDE [Suspect]
     Active Substance: ACETAZOLAMIDE
     Dosage: 250 MILLIGRAM, QD
     Route: 048
  31. ACETAZOLAMIDE [Suspect]
     Active Substance: ACETAZOLAMIDE
     Dosage: 250 MILLIGRAM, QD
     Route: 048
  32. ACETAZOLAMIDE [Suspect]
     Active Substance: ACETAZOLAMIDE
     Dosage: 250 MILLIGRAM, QD
  33. TERALITHE [Suspect]
     Active Substance: LITHIUM CARBONATE
     Indication: Product used for unknown indication
     Dosage: 1.5 DOSAGE FORM, QD, EXTENDED-RELEASE SCORED TABLET
  34. TERALITHE [Suspect]
     Active Substance: LITHIUM CARBONATE
     Dosage: 1.5 DOSAGE FORM, QD, EXTENDED-RELEASE SCORED TABLET
     Route: 048
  35. TERALITHE [Suspect]
     Active Substance: LITHIUM CARBONATE
     Dosage: 1.5 DOSAGE FORM, QD, EXTENDED-RELEASE SCORED TABLET
     Route: 048
  36. TERALITHE [Suspect]
     Active Substance: LITHIUM CARBONATE
     Dosage: 1.5 DOSAGE FORM, QD, EXTENDED-RELEASE SCORED TABLET
  37. RIVOTRIL [Concomitant]
     Active Substance: CLONAZEPAM
  38. RIVOTRIL [Concomitant]
     Active Substance: CLONAZEPAM
     Route: 065
  39. RIVOTRIL [Concomitant]
     Active Substance: CLONAZEPAM
     Route: 065
  40. RIVOTRIL [Concomitant]
     Active Substance: CLONAZEPAM
  41. OXAZEPAM [Concomitant]
     Active Substance: OXAZEPAM
  42. OXAZEPAM [Concomitant]
     Active Substance: OXAZEPAM
     Route: 065
  43. OXAZEPAM [Concomitant]
     Active Substance: OXAZEPAM
     Route: 065
  44. OXAZEPAM [Concomitant]
     Active Substance: OXAZEPAM
  45. BETAHISTINE [Concomitant]
     Active Substance: BETAHISTINE
  46. BETAHISTINE [Concomitant]
     Active Substance: BETAHISTINE
     Route: 065
  47. BETAHISTINE [Concomitant]
     Active Substance: BETAHISTINE
     Route: 065
  48. BETAHISTINE [Concomitant]
     Active Substance: BETAHISTINE
  49. Meteospasmyl [Concomitant]
  50. Meteospasmyl [Concomitant]
     Route: 065
  51. Meteospasmyl [Concomitant]
     Route: 065
  52. Meteospasmyl [Concomitant]
  53. Alfa-tocopherol [Concomitant]
  54. Alfa-tocopherol [Concomitant]
     Route: 065
  55. Alfa-tocopherol [Concomitant]
     Route: 065
  56. Alfa-tocopherol [Concomitant]
  57. CHOLECALCIFEROL [Concomitant]
     Active Substance: CHOLECALCIFEROL
  58. CHOLECALCIFEROL [Concomitant]
     Active Substance: CHOLECALCIFEROL
     Route: 065
  59. CHOLECALCIFEROL [Concomitant]
     Active Substance: CHOLECALCIFEROL
     Route: 065
  60. CHOLECALCIFEROL [Concomitant]
     Active Substance: CHOLECALCIFEROL
  61. URSODIOL [Concomitant]
     Active Substance: URSODIOL
  62. URSODIOL [Concomitant]
     Active Substance: URSODIOL
     Route: 065
  63. URSODIOL [Concomitant]
     Active Substance: URSODIOL
     Route: 065
  64. URSODIOL [Concomitant]
     Active Substance: URSODIOL

REACTIONS (1)
  - Pleural effusion [Not Recovered/Not Resolved]

NARRATIVE: CASE EVENT DATE: 20250301
